FAERS Safety Report 4546943-X (Version None)
Quarter: 2005Q1

REPORT INFORMATION
  Report Type: 
  Country: None (occurrence: None)
  Receive Date: 20050106
  Receipt Date: 20050103
  Transmission Date: 20050727
  Serious: Yes (Life-Threatening, Hospitalization)
  Sender: FDA-Public Use
  Company Number: US-MERCK-0501USA00114

PATIENT
  Age: 72 Year
  Sex: Male

DRUGS (3)
  1. VIOXX [Suspect]
     Indication: ARTHRITIS
     Route: 048
     Dates: start: 20020501
  2. VIOXX [Suspect]
     Route: 048
  3. VASOTEC [Concomitant]
     Route: 048

REACTIONS (2)
  - AORTIC ANEURYSM [None]
  - MYOCARDIAL INFARCTION [None]
